FAERS Safety Report 5051994-5 (Version None)
Quarter: 2006Q3

REPORT INFORMATION
  Report Type: 
  Country: None (occurrence: None)
  Receive Date: 20060711
  Receipt Date: 20060626
  Transmission Date: 20061208
  Serious: Yes (Death, Life-Threatening, Hospitalization)
  Sender: FDA-Public Use
  Company Number: WAES 0606USA04331

PATIENT
  Age: 65 Year
  Sex: Male

DRUGS (2)
  1. DECADRON [Suspect]
     Dosage: PO
     Route: 048
  2. VORINOSTAT [Suspect]
     Indication: GLIOBLASTOMA MULTIFORME
     Dosage: 200 MG/BID/PO
     Route: 048
     Dates: start: 20060519, end: 20060531

REACTIONS (13)
  - ASPERGILLOSIS [None]
  - ASTHENIA [None]
  - BLOOD GLUCOSE INCREASED [None]
  - BLOOD SODIUM DECREASED [None]
  - DECREASED APPETITE [None]
  - FATIGUE [None]
  - HYPERGLYCAEMIA [None]
  - HYPOXIA [None]
  - OEDEMA [None]
  - PNEUMONIA PRIMARY ATYPICAL [None]
  - PNEUMONITIS [None]
  - PULMONARY OEDEMA [None]
  - RESPIRATORY DISORDER [None]
